FAERS Safety Report 6124782-6 (Version None)
Quarter: 2009Q1

REPORT INFORMATION
  Report Type: 
  Country: None (occurrence: None)
  Receive Date: 20090319
  Receipt Date: 20090313
  Transmission Date: 20090719
  Serious: Yes (Other)
  Sender: FDA-Public Use
  Company Number: US-ALLERGAN-0901652US

PATIENT
  Sex: Female
  Weight: 90.703 kg

DRUGS (10)
  1. BOTOX COSMETIC [Suspect]
     Indication: SKIN WRINKLING
     Dosage: 25 UNITS, SINGLE
     Route: 030
     Dates: start: 20090202, end: 20090202
  2. BOTOX COSMETIC [Suspect]
     Dosage: UNK, SINGLE
     Route: 030
     Dates: start: 20080710, end: 20080710
  3. ATENOLOL [Concomitant]
     Indication: HYPERTENSION
     Dosage: 10 MG, UNK
     Route: 048
  4. LIPITOR [Concomitant]
     Indication: BLOOD CHOLESTEROL INCREASED
     Dosage: 10 MG, UNK
     Route: 048
  5. ZETIA [Concomitant]
     Indication: BLOOD CHOLESTEROL INCREASED
     Dosage: 5 MG, UNK
     Route: 048
  6. DIAZIDE [Concomitant]
     Indication: HYPERTENSION
     Route: 048
  7. PROZAC [Concomitant]
     Indication: AFFECTIVE DISORDER
     Dosage: 10 MG, UNK
     Route: 048
  8. ASPIRIN [Concomitant]
     Route: 048
  9. FISH OIL [Concomitant]
  10. MULTI-VITAMINS [Concomitant]

REACTIONS (1)
  - HERPES ZOSTER [None]
